FAERS Safety Report 5183983-4 (Version None)
Quarter: 2006Q4

REPORT INFORMATION
  Report Type: 
  Country: None (occurrence: None)
  Receive Date: 20061220
  Receipt Date: 20060302
  Transmission Date: 20070319
  Serious: No
  Sender: FDA-Public Use
  Company Number: US-GLAXOSMITHKLINE-A0596100A

PATIENT
  Sex: Male

DRUGS (1)
  1. NICODERM CQ [Suspect]
     Dates: start: 20060225, end: 20060302

REACTIONS (6)
  - ABNORMAL DREAMS [None]
  - AGITATION [None]
  - CONSTIPATION [None]
  - INSOMNIA [None]
  - NERVOUSNESS [None]
  - PAIN [None]
